FAERS Safety Report 17763489 (Version 1)
Quarter: 2020Q2

REPORT INFORMATION
  Report Type: Spontaneous
  Country: FR (occurrence: FR)
  Receive Date: 20200509
  Receipt Date: 20200509
  Transmission Date: 20200714
  Serious: Yes (Other)
  Sender: FDA-Public Use
  Company Number: FR-TEVA-2020-FR-1234697

PATIENT
  Age: 34 Year
  Sex: Female

DRUGS (4)
  1. ELIQUIS [Suspect]
     Active Substance: APIXABAN
     Indication: PRODUCT USED FOR UNKNOWN INDICATION
     Dosage: 5 MG
     Route: 048
  2. VITAMINE A [Suspect]
     Active Substance: RETINOL
     Indication: STARVATION
     Dosage: 1 DOSAGE FORM
     Route: 030
  3. COPAXONE [Suspect]
     Active Substance: GLATIRAMER ACETATE
     Indication: MULTIPLE SCLEROSIS
     Dosage: FORM STRENGTH: UNKNOWN
     Route: 058
     Dates: start: 20190705, end: 20200313
  4. UVEDOSE 100 000 UI, SOLUTION BUVABLE EN AMPOULE [Suspect]
     Active Substance: CHOLECALCIFEROL
     Indication: STARVATION
     Dosage: 1 DOSAGE FORM
     Route: 048

REACTIONS (1)
  - Eosinophil count increased [Not Recovered/Not Resolved]

NARRATIVE: CASE EVENT DATE: 201908
